FAERS Safety Report 17816509 (Version 3)
Quarter: 2022Q2

REPORT INFORMATION
  Report Type: Spontaneous
  Country: US (occurrence: US)
  Receive Date: 20200522
  Receipt Date: 20220405
  Transmission Date: 20220720
  Serious: No
  Sender: FDA-Public Use
  Company Number: US-PFIZER INC-2020203603

PATIENT
  Age: 56 Year
  Sex: Female

DRUGS (1)
  1. IBRANCE [Suspect]
     Active Substance: PALBOCICLIB
     Indication: Breast cancer
     Dosage: 75 MG

REACTIONS (2)
  - Amnesia [Unknown]
  - Neoplasm progression [Unknown]
